FAERS Safety Report 4488927-6 (Version None)
Quarter: 2004Q4

REPORT INFORMATION
  Report Type: 
  Country: None (occurrence: None)
  Receive Date: 20041029
  Receipt Date: 20040429
  Transmission Date: 20050328
  Serious: Yes (Hospitalization)
  Sender: FDA-Public Use
  Company Number: FR-ABBOTT-04P-056-0259342-00

PATIENT
  Sex: Female
  Weight: 60 kg

DRUGS (14)
  1. HUMIRA [Suspect]
     Indication: RHEUMATOID ARTHRITIS
     Route: 058
     Dates: start: 20031001, end: 20040101
  2. METHOTREXATE [Concomitant]
     Indication: RHEUMATOID ARTHRITIS
     Dates: start: 19990101
  3. PREDNISONE [Concomitant]
     Indication: RHEUMATOID ARTHRITIS
     Dates: start: 19990101, end: 20031016
  4. PREDNISONE [Concomitant]
     Indication: SCIATICA
     Route: 048
     Dates: start: 20030825, end: 20030830
  5. PREDNISONE [Concomitant]
     Route: 048
     Dates: start: 20031016
  6. FOLIC ACID [Concomitant]
     Indication: RHEUMATOID ARTHRITIS
     Route: 048
     Dates: start: 19990101, end: 20031016
  7. ACETAMINOPHEN AND CODEINE PHOSPHATE [Concomitant]
     Indication: RHEUMATOID ARTHRITIS
     Dosage: GEL
     Dates: start: 19990101
  8. SOTALOL HYDROCHLORIDE [Concomitant]
     Indication: TACHYCARDIA
     Route: 048
     Dates: start: 19990101, end: 20031016
  9. LORAZEPAM [Concomitant]
     Indication: INSOMNIA
     Route: 048
     Dates: start: 19980101, end: 20031016
  10. PIRACETAM [Concomitant]
     Indication: VERTIGO
     Route: 048
     Dates: start: 20000101, end: 20031016
  11. VELITEN [Concomitant]
     Indication: VENOUS INSUFFICIENCY
     Route: 048
     Dates: start: 20021201, end: 20031016
  12. DICLOFENAC SODIUM [Concomitant]
     Indication: RHEUMATOID ARTHRITIS
     Dates: start: 19950101, end: 20031016
  13. ACTIM [Concomitant]
     Indication: DRUG USE FOR UNKNOWN INDICATION
     Dates: start: 20031016, end: 20031016
  14. STEROID [Concomitant]
     Indication: SCIATICA
     Dates: start: 20030801, end: 20030801

REACTIONS (4)
  - ARTHRALGIA [None]
  - LYMPHADENOPATHY MEDIASTINAL [None]
  - SCAB [None]
  - TUBERCULOSIS [None]
